FAERS Safety Report 23697108 (Version 1)
Quarter: 2024Q2

REPORT INFORMATION
  Report Type: Report from Study
  Country: CA (occurrence: CA)
  Receive Date: 20240402
  Receipt Date: 20240402
  Transmission Date: 20240716
  Serious: Yes (Hospitalization)
  Sender: FDA-Public Use
  Company Number: CA-BEH-2024170247

PATIENT
  Age: 44 Year
  Sex: Female
  Weight: 74.83 kg

DRUGS (1)
  1. HIZENTRA [Suspect]
     Active Substance: HUMAN IMMUNOGLOBULIN G
     Indication: Primary immunodeficiency syndrome
     Dosage: 8 G, QW
     Route: 065
     Dates: start: 20230123

REACTIONS (6)
  - Pulmonary embolism [Unknown]
  - Product use complaint [Unknown]
  - Infusion site pruritus [Unknown]
  - Infusion site mass [Unknown]
  - Attention deficit hyperactivity disorder [Unknown]
  - Ehlers-Danlos syndrome [Unknown]

NARRATIVE: CASE EVENT DATE: 20231101
